FAERS Safety Report 5756560-1 (Version None)
Quarter: 2008Q2

REPORT INFORMATION
  Report Type: 
  Country: None (occurrence: None)
  Receive Date: 20080603
  Receipt Date: 20080526
  Transmission Date: 20081010
  Serious: Yes (Other)
  Sender: FDA-Public Use
  Company Number: PHHY2008FR08974

PATIENT
  Age: 30 Year
  Sex: Female

DRUGS (1)
  1. SYNTOCINON [Suspect]
     Dosage: 5 IU/ML

REACTIONS (1)
  - GRAND MAL CONVULSION [None]
